FAERS Safety Report 20512323 (Version 1)
Quarter: 2022Q1

REPORT INFORMATION
  Report Type: Spontaneous
  Country: FR (occurrence: FR)
  Receive Date: 20220224
  Receipt Date: 20220224
  Transmission Date: 20220423
  Serious: Yes (Death)
  Sender: FDA-Public Use
  Company Number: None

PATIENT
  Age: 73 Year
  Sex: Female
  Weight: 36.6 kg

DRUGS (26)
  1. RITUXIMAB [Suspect]
     Active Substance: RITUXIMAB
     Indication: Central nervous system lymphoma
     Dosage: 375 MG/M2 (SOIT 596.25MG DOSE TOTALE)
     Route: 042
     Dates: start: 20210923, end: 20220117
  2. RITUXIMAB [Suspect]
     Active Substance: RITUXIMAB
     Dosage: 375 MG/M2
     Route: 042
     Dates: start: 20211025
  3. RITUXIMAB [Suspect]
     Active Substance: RITUXIMAB
     Dosage: 375 MG/M2, (SOIT 573.75MG)
     Route: 042
     Dates: start: 20211122
  4. RITUXIMAB [Suspect]
     Active Substance: RITUXIMAB
     Dosage: 375 MG/M2 (SOIT 573.75 MG)
     Route: 065
     Dates: start: 20211220
  5. RITUXIMAB [Suspect]
     Active Substance: RITUXIMAB
     Dosage: 375 MG/M2 (521,5 MG)
     Route: 042
     Dates: start: 20220117
  6. METHOTREXATE [Suspect]
     Active Substance: METHOTREXATE
     Indication: Central nervous system lymphoma
     Dosage: 3.5 MG/M2 (J1 DE SOIT UNE DOSE TOTALE DE 5565 MG)
     Route: 042
     Dates: start: 20210923, end: 20220104
  7. METHOTREXATE [Suspect]
     Active Substance: METHOTREXATE
     Dosage: 3500 MG/M2  (SOIT 5530 MG DOSE TOTALE A J15)
     Route: 042
     Dates: start: 20211011
  8. METHOTREXATE [Suspect]
     Active Substance: METHOTREXATE
     Dosage: 3.5 G/M?
     Route: 042
     Dates: start: 20211025
  9. METHOTREXATE [Suspect]
     Active Substance: METHOTREXATE
     Dosage: 3500 MG/M2 (SOIT 5530 MG, A J1)
     Route: 042
     Dates: start: 20211109
  10. METHOTREXATE [Suspect]
     Active Substance: METHOTREXATE
     Dosage: 3500 MG/M2 ( SOIT 5250 MG, A J15)
     Route: 042
     Dates: start: 20211207
  11. METHOTREXATE [Suspect]
     Active Substance: METHOTREXATE
     Dosage: UNK (3.5 G/M? EN IV SOIT 5350MG)
     Route: 042
     Dates: start: 20211122
  12. METHOTREXATE [Suspect]
     Active Substance: METHOTREXATE
     Dosage: UNK (3.5 G/M? EN IV SOIT 5355MG)
     Route: 042
     Dates: start: 20211220
  13. METHOTREXATE [Suspect]
     Active Substance: METHOTREXATE
     Dosage: UNK (A LA DOSE DE 3.5 G/M? SOIT 5.355 G A J1)
     Route: 042
     Dates: start: 20220104
  14. CYTARABINE [Suspect]
     Active Substance: CYTARABINE
     Indication: Central nervous system lymphoma
     Dosage: 8 G (5- CONSOLIDATION C1J1 R-ARACYTINE 17/01/2022 =  RITUXIMAB 375MG/M? SOIT 521,5 MG + ARACYTINE 3
     Route: 042
     Dates: start: 20220117, end: 20220119
  15. VINCRISTINE [Suspect]
     Active Substance: VINCRISTINE
     Indication: Central nervous system lymphoma
     Dosage: 1.4 MG/M2, TOTAL ( J1 VINCRISTINE 1.4 MG/M? SOIT UNE DOSE TOTALE DE 2 MG + J1 A J5 METHYLPREDNISOLON
     Route: 042
     Dates: start: 20210923, end: 20220104
  16. VINCRISTINE [Suspect]
     Active Substance: VINCRISTINE
     Dosage: 1.4 MG/M2, (VINCRISTINE 1,4 MG/M? CAP? ? 2 MG DOSE TOTALE ? J15.METHYLPRENISOLONE 60 MG PAR JOUR DE
     Route: 042
     Dates: start: 20211011
  17. VINCRISTINE [Suspect]
     Active Substance: VINCRISTINE
     Dosage: 1.4 MG/M2 (CAPEE A 2 MG DOSE TOTALE)
     Route: 042
     Dates: start: 20211025
  18. VINCRISTINE [Suspect]
     Active Substance: VINCRISTINE
     Dosage: 1.4 MG/M2 (SOIT 2 MG ? J1 + METHYLPREDNISOLONE 60 MG PAR JOUR DE J15 A J18)
     Route: 042
     Dates: start: 20211109
  19. VINCRISTINE [Suspect]
     Active Substance: VINCRISTINE
     Dosage: 1.4 MG/M2 (CAP?E ? 2 MG DOSE TOTALE EN IV + J2 METHOTREXATE 3.5 G/M? EN IV SOIT 5350MG)
     Route: 042
     Dates: start: 20211122
  20. VINCRISTINE [Suspect]
     Active Substance: VINCRISTINE
     Dosage: 1.4 MG/M2 (SOIT 2.1 MG A J15 + METHYLPREDNISOLONE 60 MG PAR JOUR DE J15 A J18)
     Route: 042
     Dates: start: 20211207
  21. VINCRISTINE [Suspect]
     Active Substance: VINCRISTINE
     Dosage: 1.4 MG/M2 (A 2.1 MG DOSE TOTAL)
     Route: 042
     Dates: start: 20211220
  22. VINCRISTINE [Suspect]
     Active Substance: VINCRISTINE
     Dosage: 1.4 MG/M2 ( SOIT 2 MG A J1 (DOSE MAXIMALE)
     Route: 065
     Dates: start: 20220104
  23. PROCARBAZINE [Suspect]
     Active Substance: PROCARBAZINE
     Indication: Central nervous system lymphoma
     Dosage: 100 MG/M2, (100MG/M2 SOIT 159MG DE J1 A J7)
     Route: 042
     Dates: start: 20210923, end: 20211220
  24. PROCARBAZINE [Suspect]
     Active Substance: PROCARBAZINE
     Dosage: 100 MG/M2 (PER OS SOIT 150MG, STOPPE A J3 DU FAIT DUNE NEUTROPENIE DE GRADE 4 (SAI)
     Route: 042
     Dates: start: 20211122
  25. PROCARBAZINE [Suspect]
     Active Substance: PROCARBAZINE
     Dosage: 100 MG/M2 ( SOIT 150 MG DE J1 A J7)
     Route: 042
     Dates: start: 20211220
  26. PROCARBAZINE [Suspect]
     Active Substance: PROCARBAZINE
     Dosage: 100 MG/M2 (PER OS)
     Route: 042
     Dates: start: 20211025

REACTIONS (1)
  - Neurotoxicity [Fatal]

NARRATIVE: CASE EVENT DATE: 20220119
